FAERS Safety Report 8120287-1 (Version None)
Quarter: 2012Q1

REPORT INFORMATION
  Report Type: 
  Country: None (occurrence: None)
  Receive Date: 20120207
  Receipt Date: 20120202
  Transmission Date: 20120608
  Serious: Yes (Hospitalization)
  Sender: FDA-Public Use
  Company Number: US-GLAXOSMITHKLINE-A0832574A

PATIENT
  Age: 64 Year
  Sex: Male

DRUGS (3)
  1. CRESTOR [Concomitant]
  2. NORVASC [Concomitant]
  3. AVANDIA [Suspect]
     Indication: DIABETES MELLITUS
     Dosage: 4MG PER DAY
     Route: 048
     Dates: start: 20051205, end: 20070924

REACTIONS (8)
  - CARDIOVASCULAR DISORDER [None]
  - HEART RATE IRREGULAR [None]
  - ANGINA UNSTABLE [None]
  - STENT PLACEMENT [None]
  - TACHYCARDIA [None]
  - CHEST PAIN [None]
  - DYSPNOEA [None]
  - CORONARY ANGIOPLASTY [None]
